FAERS Safety Report 13197010 (Version 1)
Quarter: 2017Q1

REPORT INFORMATION
  Report Type: Spontaneous
  Country: US (occurrence: US)
  Receive Date: 20170208
  Receipt Date: 20170208
  Transmission Date: 20170428
  Serious: No
  Sender: FDA-Public Use
  Company Number: US-AMGEN-USASP2016131621

PATIENT

DRUGS (4)
  1. IFOSFAMIDE. [Concomitant]
     Active Substance: IFOSFAMIDE
     Indication: UTERINE CANCER
     Dosage: UNK, UNK, EVERY 21 DAYS
  2. PACLITAXEL. [Concomitant]
     Active Substance: PACLITAXEL
     Indication: UTERINE CANCER
     Dosage: UNK, UNK, EVERY 21 DAYS
  3. NEULASTA [Suspect]
     Active Substance: PEGFILGRASTIM
     Indication: PRODUCT USED FOR UNKNOWN INDICATION
     Dosage: UNK, UNK, EVERY 21 DAYS
     Route: 065
  4. MESNEX [Concomitant]
     Active Substance: MESNA
     Indication: UTERINE CANCER
     Dosage: UNK

REACTIONS (4)
  - Pain in jaw [Recovering/Resolving]
  - Alopecia [Recovered/Resolved]
  - Madarosis [Recovered/Resolved]
  - Dysgeusia [Recovered/Resolved]
